FAERS Safety Report 5372546-3 (Version None)
Quarter: 2007Q2

REPORT INFORMATION
  Report Type: 
  Country: None (occurrence: None)
  Receive Date: 20070626
  Receipt Date: 20070615
  Transmission Date: 20071010
  Serious: Yes (Hospitalization)
  Sender: FDA-Public Use
  Company Number: 107652ISR

PATIENT
  Age: 40 Year
  Sex: Female

DRUGS (3)
  1. COPAXONE [Suspect]
     Indication: MULTIPLE SCLEROSIS
     Dosage: 20 MG (20 MG, ONCE A DAY)
     Route: 058
     Dates: start: 20040601
  2. POTASSIUM IODIDE [Concomitant]
  3. ARIPIPRAZOLE [Concomitant]

REACTIONS (1)
  - CYSTOSARCOMA PHYLLODES [None]
